FAERS Safety Report 7241137-1 (Version None)
Quarter: 2011Q1

REPORT INFORMATION
  Report Type: 
  Country: None (occurrence: None)
  Receive Date: 20110120
  Receipt Date: 20110120
  Transmission Date: 20110831
  Serious: Yes (Life-Threatening, Hospitalization)
  Sender: FDA-Public Use
  Company Number: None

PATIENT
  Age: 52 Year
  Sex: Male
  Weight: 90.7194 kg

DRUGS (5)
  1. SOMA [Suspect]
     Indication: MUSCLE RELAXANT THERAPY
     Dosage: 350 MG 3X PER DAY ORAL
     Route: 048
  2. SOMA [Suspect]
     Indication: MYALGIA
     Dosage: 350 MG 3X PER DAY ORAL
     Route: 048
  3. ZYPREXA [Suspect]
     Indication: MYALGIA
     Dosage: ZYPREXA 20 MG. 1 PER DAY ORAL OFF AND ON
     Route: 048
  4. ZYPREXA [Suspect]
     Indication: MUSCLE RELAXANT THERAPY
     Dosage: ZYPREXA 20 MG. 1 PER DAY ORAL OFF AND ON
     Route: 048
  5. HYDROCODONE BITARTRATE AND ACETAMINOPHEN [Suspect]
     Indication: SOMNOLENCE
     Dosage: HYDROCODONE 7.5/350 MG ORAL
     Route: 048

REACTIONS (5)
  - PERSONALITY CHANGE [None]
  - ILL-DEFINED DISORDER [None]
  - STUPOR [None]
  - CONFUSIONAL STATE [None]
  - PSYCHOTIC DISORDER [None]
